FAERS Safety Report 8230736-6 (Version None)
Quarter: 2012Q1

REPORT INFORMATION
  Report Type: 
  Country: None (occurrence: None)
  Receive Date: 20120322
  Receipt Date: 20120322
  Transmission Date: 20120608
  Serious: Yes (Hospitalization)
  Sender: FDA-Public Use
  Company Number: None

PATIENT
  Age: 64 Year
  Sex: Female
  Weight: 73.4827 kg

DRUGS (1)
  1. HIZENTRA [Suspect]
     Indication: IMMUNODEFICIENCY
     Dosage: 14GM SUBCUTANEOUSLY ONCE PER WEEK
     Route: 058
     Dates: start: 20110126, end: 20120301

REACTIONS (2)
  - SURGERY [None]
  - POSTOPERATIVE RENAL FAILURE [None]
